FAERS Safety Report 7629140-0 (Version None)
Quarter: 2011Q3

REPORT INFORMATION
  Report Type: 
  Country: None (occurrence: None)
  Receive Date: 20110722
  Receipt Date: 20110613
  Transmission Date: 20111222
  Serious: No
  Sender: FDA-Public Use
  Company Number: US-MUTUAL PHARMACEUTICAL COMPANY, INC.-DXCY20110009

PATIENT
  Age: 64 Year
  Sex: Female

DRUGS (3)
  1. DOXYCYCLINE [Suspect]
     Indication: ROSACEA
     Route: 065
  2. VITAMIN B12 SHOTS [Concomitant]
     Indication: HYPOVITAMINOSIS
  3. VITAMIN B6 [Concomitant]
     Indication: ROSACEA
     Route: 065

REACTIONS (1)
  - DRUG EFFECT DECREASED [None]
